FAERS Safety Report 12211819 (Version 1)
Quarter: 2016Q1

REPORT INFORMATION
  Report Type: Spontaneous
  Country: IT (occurrence: AT)
  Receive Date: 20160325
  Receipt Date: 20160325
  Transmission Date: 20160526
  Serious: Yes (Other)
  Sender: FDA-Public Use
  Company Number: AT-FRI-1000083436

PATIENT
  Sex: Male

DRUGS (2)
  1. NEBIVOLOL. [Suspect]
     Active Substance: NEBIVOLOL
     Route: 048
  2. AMLODIPINE [Concomitant]
     Active Substance: AMLODIPINE BESYLATE

REACTIONS (7)
  - Bradycardia [Unknown]
  - Dyspnoea [Unknown]
  - Atrioventricular block [Unknown]
  - Cough [Unknown]
  - Bronchospasm [Unknown]
  - Fatigue [Unknown]
  - Angina pectoris [Unknown]
